FAERS Safety Report 9524681 (Version 2)
Quarter: 2013Q4

REPORT INFORMATION
  Report Type: Spontaneous
  Country: US (occurrence: US)
  Receive Date: 20130916
  Receipt Date: 20131028
  Transmission Date: 20140711
  Serious: No
  Sender: FDA-Public Use
  Company Number: US-ROXANE LABORATORIES, INC.-2013-RO-01527RO

PATIENT
  Sex: Female

DRUGS (3)
  1. IPRATROPIUM BROMIDE NASAL SOLUTION, 0.06% [Suspect]
     Indication: UPPER-AIRWAY COUGH SYNDROME
     Route: 045
  2. UNSPECIFIED INGREDIENT [Concomitant]
  3. HORMONE [Concomitant]

REACTIONS (2)
  - Drug ineffective for unapproved indication [Recovered/Resolved]
  - Product quality issue [Recovered/Resolved]
